FAERS Safety Report 10023588 (Version 2)
Quarter: 2014Q2

REPORT INFORMATION
  Report Type: Spontaneous
  Country: US (occurrence: US)
  Receive Date: 20140320
  Receipt Date: 20140620
  Transmission Date: 20141212
  Serious: Yes (Hospitalization, Other)
  Sender: FDA-Public Use
  Company Number: US-AMGEN-USASP2014019147

PATIENT
  Age: 44 Year
  Sex: Female

DRUGS (1)
  1. ENBREL [Suspect]
     Indication: PSORIASIS
     Dosage: 50 MG, QWK
     Route: 065
     Dates: start: 20050401, end: 201404

REACTIONS (5)
  - Intraductal proliferative breast lesion [Recovered/Resolved]
  - Stress [Not Recovered/Not Resolved]
  - Nuclear magnetic resonance imaging abnormal [Recovered/Resolved]
  - Implant site pain [Not Recovered/Not Resolved]
  - Psoriasis [Not Recovered/Not Resolved]
